FAERS Safety Report 18675764 (Version 1)
Quarter: 2020Q4

REPORT INFORMATION
  Report Type: Spontaneous
  Country: JP (occurrence: JP)
  Receive Date: 20201229
  Receipt Date: 20201229
  Transmission Date: 20210114
  Serious: No
  Sender: FDA-Public Use
  Company Number: JP-TOLMAR, INC.-20JP024475

PATIENT
  Age: 55 Year
  Sex: Female

DRUGS (1)
  1. ELIGARD [Suspect]
     Active Substance: LEUPROLIDE ACETATE
     Indication: UTERINE ENLARGEMENT
     Dosage: UNK, SINGLE
     Route: 065

REACTIONS (1)
  - Off label use [Unknown]
